FAERS Safety Report 9693553 (Version 2)
Quarter: 2013Q4

REPORT INFORMATION
  Report Type: Spontaneous
  Country: JP (occurrence: JP)
  Receive Date: 20131118
  Receipt Date: 20131217
  Transmission Date: 20140711
  Serious: Yes (Other)
  Sender: FDA-Public Use
  Company Number: JP-GLAXOSMITHKLINE-B0944095A

PATIENT
  Sex: Female

DRUGS (10)
  1. REQUIP [Suspect]
     Indication: PARKINSON^S DISEASE
     Dosage: 2MG PER DAY
     Route: 048
     Dates: start: 20130926, end: 20131111
  2. REQUIP [Suspect]
     Indication: PARKINSON^S DISEASE
     Dosage: 2MG PER DAY
     Route: 048
     Dates: end: 20130925
  3. MENESIT [Concomitant]
     Route: 048
  4. COMTAN [Concomitant]
     Route: 048
  5. ARICEPT [Concomitant]
     Route: 048
  6. SEROQUEL [Concomitant]
     Route: 048
  7. METHYCOBAL [Concomitant]
     Route: 065
  8. JUVELA [Concomitant]
     Route: 065
  9. FP [Concomitant]
     Route: 048
  10. UNKNOWN DRUG [Concomitant]
     Route: 065

REACTIONS (2)
  - Hallucination, visual [Not Recovered/Not Resolved]
  - Parkinson^s disease [Unknown]
